FAERS Safety Report 4917125-4 (Version None)
Quarter: 2006Q1

REPORT INFORMATION
  Report Type: 
  Country: None (occurrence: None)
  Receive Date: 20060214
  Receipt Date: 20060130
  Transmission Date: 20060701
  Serious: Yes (Life-Threatening)
  Sender: FDA-Public Use
  Company Number: JP200602000303

PATIENT
  Age: 70 Year
  Sex: Male
  Weight: 54.5 kg

DRUGS (11)
  1. GEMZAR [Suspect]
     Indication: NON-SMALL CELL LUNG CANCER RECURRENT
     Dosage: 1400 MG, OTHER, INTRAVENOUS
     Route: 042
     Dates: start: 20040617, end: 20050106
  2. NAVELBINE ^GLAXO WELLCOME^ (VINORELBINE DITARTRATE) [Concomitant]
  3. KYTRIL [Concomitant]
  4. ORGADRONE (DEXAMETHASONE SODIUM PHOSPHATE) [Concomitant]
  5. BISOPROLOL FUMARATE [Concomitant]
  6. DEPAS (ETIZOLAM) [Concomitant]
  7. TRAZODONE HCL [Concomitant]
  8. MIGSIS (LOMERIZINE HYDROCHLORIDE) [Concomitant]
  9. ROXATIDINE ACETATE HCL [Concomitant]
  10. AMOXAPINE [Concomitant]
  11. ASPIRIN [Concomitant]

REACTIONS (7)
  - ACUTE MYOCARDIAL INFARCTION [None]
  - ASPARTATE AMINOTRANSFERASE INCREASED [None]
  - ATRIAL FIBRILLATION [None]
  - BLOOD LACTATE DEHYDROGENASE INCREASED [None]
  - CARDIAC FAILURE [None]
  - CORONARY ARTERY STENOSIS [None]
  - PNEUMONIA [None]
